FAERS Safety Report 5367715-2 (Version None)
Quarter: 2007Q2

REPORT INFORMATION
  Report Type: 
  Country: None (occurrence: None)
  Receive Date: 20070619
  Receipt Date: 20070608
  Transmission Date: 20071010
  Serious: Yes (Death)
  Sender: FDA-Public Use
  Company Number: 07H-028/-0312717-00

PATIENT
  Age: 44 Year
  Sex: Male
  Weight: 85 kg

DRUGS (18)
  1. QUELICIN [Suspect]
     Indication: DRUG USE FOR UNKNOWN INDICATION
     Dosage: 100 MG, SINGLE DOSE, INTRAVENOUS
     Route: 042
     Dates: start: 20070608, end: 20070608
  2. PROPOFOL [Concomitant]
  3. CIPROFLOXACIN HCL (CIPROFLOXACIN HYDROCHLORIDE) [Concomitant]
  4. DOCUSATE SODIUM [Concomitant]
  5. FUROSEMIDE [Concomitant]
  6. NYSTATIN [Concomitant]
  7. OMEPRAZOLE [Concomitant]
  8. RAMIPRIL [Concomitant]
  9. ACETAMINOPHEN [Concomitant]
  10. DIAZEPAM [Concomitant]
  11. DOPAMINE-DEXTROSE (DOPAMINE HCL IN 5% DEXTROSE) [Concomitant]
  12. HYDRALAZINE HCL (HYDRALAZINE HYDROCHLORIDE) [Concomitant]
  13. IPRATROPIUM BROMIDE [Concomitant]
  14. POTASSIUM CHLORIDE [Concomitant]
  15. METOCLOPRAMIDE (METOCLOPRAMIDE HYDROCHLORIDE) [Concomitant]
  16. SALBUTAMOL [Concomitant]
  17. DEXTROSE 5% (GLUCOSE) [Concomitant]
  18. PIPERACILLIN AND TAZOBACTAM [Concomitant]

REACTIONS (4)
  - BRADYARRHYTHMIA [None]
  - CARDIAC ARREST [None]
  - VENTRICULAR FIBRILLATION [None]
  - VENTRICULAR TACHYCARDIA [None]
